FAERS Safety Report 10519108 (Version 2)
Quarter: 2014Q4

REPORT INFORMATION
  Report Type: Spontaneous
  Country: US (occurrence: US)
  Receive Date: 20141015
  Receipt Date: 20141103
  Transmission Date: 20150528
  Serious: Yes (Hospitalization, Other)
  Sender: FDA-Public Use
  Company Number: US-GLAXOSMITHKLINE-US2014GSK006400

PATIENT
  Sex: Male

DRUGS (4)
  1. PROMACTA [Suspect]
     Active Substance: ELTROMBOPAG OLAMINE
     Indication: PRODUCT USED FOR UNKNOWN INDICATION
     Dosage: 25 MG, U
     Dates: start: 201404
  2. PROMACTA [Suspect]
     Active Substance: ELTROMBOPAG OLAMINE
     Dosage: 25 MG, QOD
  3. PROMACTA [Suspect]
     Active Substance: ELTROMBOPAG OLAMINE
     Dosage: 25 MG, UNK
  4. PROMACTA [Suspect]
     Active Substance: ELTROMBOPAG OLAMINE
     Dosage: 25 MG, UNK

REACTIONS (10)
  - Blister rupture [Recovering/Resolving]
  - Increased tendency to bruise [Recovering/Resolving]
  - Immune system disorder [Recovering/Resolving]
  - Blood blister [Recovering/Resolving]
  - Platelet disorder [Recovering/Resolving]
  - Pruritus [Recovering/Resolving]
  - Myocardial infarction [Recovering/Resolving]
  - Adverse drug reaction [Recovering/Resolving]
  - Rash [Recovering/Resolving]
  - Vitreous floaters [Recovering/Resolving]
